FAERS Safety Report 5425874-7 (Version None)
Quarter: 2007Q3

REPORT INFORMATION
  Report Type: 
  Country: None (occurrence: None)
  Receive Date: 20070827
  Receipt Date: 20070814
  Transmission Date: 20080115
  Serious: Yes (Death, Hospitalization)
  Sender: FDA-Public Use
  Company Number: TH-JNJFOC-20070704123

PATIENT
  Age: 33 Year
  Sex: Female

DRUGS (7)
  1. ACETAMINOPHEN [Suspect]
     Indication: PHARYNGOLARYNGEAL PAIN
     Route: 048
  2. ACETAMINOPHEN [Suspect]
     Indication: HEADACHE
     Route: 048
  3. ACETAMINOPHEN [Suspect]
     Indication: PYREXIA
     Route: 048
  4. RANITIDINE [Concomitant]
     Indication: GASTRITIS
  5. ROXITHROMYCIN [Concomitant]
     Indication: PHARYNGOLARYNGEAL PAIN
  6. DIMENHYDRAMINE [Concomitant]
  7. AMOXICILLIN [Concomitant]

REACTIONS (3)
  - ACUTE HEPATIC FAILURE [None]
  - MULTI-ORGAN FAILURE [None]
  - RENAL FAILURE ACUTE [None]
